FAERS Safety Report 14109526 (Version 1)
Quarter: 2017Q4

REPORT INFORMATION
  Report Type: Report from Study
  Country: None (occurrence: US)
  Receive Date: 20171020
  Receipt Date: 20171020
  Transmission Date: 20180321
  Serious: Yes (Other)
  Sender: FDA-Public Use
  Company Number: US-ABBVIE-17K-163-2107671-00

PATIENT
  Age: 39 Year
  Sex: Female
  Weight: 56.75 kg

DRUGS (3)
  1. HUMIRA [Suspect]
     Active Substance: ADALIMUMAB
     Indication: CROHN^S DISEASE
     Route: 058
     Dates: start: 20170706, end: 20170710
  2. VITAMIN B12 [Concomitant]
     Active Substance: CYANOCOBALAMIN
     Indication: CROHN^S DISEASE
  3. HUMIRA [Suspect]
     Active Substance: ADALIMUMAB
     Route: 058
     Dates: start: 20170926

REACTIONS (9)
  - Dizziness [Unknown]
  - Visual impairment [Unknown]
  - Cerebrospinal fluid leakage [Unknown]
  - Diarrhoea [Unknown]
  - Headache [Unknown]
  - Abdominal pain [Unknown]
  - Abdominal pain upper [Unknown]
  - Pyrexia [Unknown]
  - Sinus disorder [Unknown]

NARRATIVE: CASE EVENT DATE: 2017
